FAERS Safety Report 6939287-X (Version None)
Quarter: 2010Q3

REPORT INFORMATION
  Report Type: 
  Country: None (occurrence: None)
  Receive Date: 20100824
  Receipt Date: 20100618
  Transmission Date: 20110219
  Serious: Yes (Life-Threatening, Other)
  Sender: FDA-Public Use
  Company Number: US-MYLANLABS-2010S1007913

PATIENT
  Age: 42 Year
  Sex: Female
  Weight: 163 kg

DRUGS (5)
  1. LEVETIRACETAM [Suspect]
     Indication: CONVULSION
     Route: 048
     Dates: start: 20100412, end: 20100420
  2. LEVETIRACETAM [Suspect]
     Indication: EPILEPSY
     Route: 048
     Dates: start: 20100412, end: 20100420
  3. LEVETIRACETAM [Suspect]
     Route: 048
     Dates: start: 20100420, end: 20100424
  4. LEVETIRACETAM [Suspect]
     Route: 048
     Dates: start: 20100420, end: 20100424
  5. CALCIUM [Concomitant]
     Dates: start: 20090101

REACTIONS (2)
  - CONVULSION [None]
  - DRUG INEFFECTIVE FOR UNAPPROVED INDICATION [None]
